FAERS Safety Report 4698949-8 (Version None)
Quarter: 2005Q2

REPORT INFORMATION
  Report Type: 
  Country: None (occurrence: None)
  Receive Date: 20050622
  Receipt Date: 20050622
  Transmission Date: 20051028
  Serious: Yes (Hospitalization)
  Sender: FDA-Public Use
  Company Number: None

PATIENT
  Age: 43 Year
  Sex: Female
  Weight: 82.5547 kg

DRUGS (9)
  1. PACLITAXEL [Suspect]
     Indication: BREAST CANCER
     Dosage: 312 MG IV
     Route: 042
     Dates: start: 20041203
  2. WELLBUTRIN [Concomitant]
  3. IBUPROFEN [Concomitant]
  4. COMPAZINE [Concomitant]
  5. XANAX [Concomitant]
  6. DEXAMETHASONE [Concomitant]
  7. FAMOTIDINE [Concomitant]
  8. TYLENOL [Concomitant]
  9. ACYCLOVIR [Concomitant]

REACTIONS (8)
  - BACTERIAL INFECTION [None]
  - CARDIAC FAILURE CONGESTIVE [None]
  - CHEST DISCOMFORT [None]
  - CHEST X-RAY ABNORMAL [None]
  - COUGH [None]
  - DYSPNOEA [None]
  - FLUID RETENTION [None]
  - LUNG INFILTRATION [None]
